FAERS Safety Report 6511607-X (Version None)
Quarter: 2009Q4

REPORT INFORMATION
  Report Type: 
  Country: None (occurrence: None)
  Receive Date: 20091222
  Receipt Date: 20090428
  Transmission Date: 20100525
  Serious: No
  Sender: FDA-Public Use
  Company Number: US-ASTRAZENECA-2009UW10579

PATIENT
  Age: 66 Year
  Sex: Female
  Weight: 53.5 kg

DRUGS (5)
  1. CRESTOR [Suspect]
     Route: 048
  2. DIGOXIN [Concomitant]
     Indication: HEART RATE IRREGULAR
  3. PRILOSEC [Concomitant]
     Indication: GASTROOESOPHAGEAL REFLUX DISEASE
  4. TOPROL-XL [Concomitant]
     Indication: HEART RATE IRREGULAR
  5. LOW DOSE HORMONE REPLACEMENT THERAPY [Concomitant]

REACTIONS (2)
  - GASTROOESOPHAGEAL REFLUX DISEASE [None]
  - SENSATION OF FOREIGN BODY [None]
